FAERS Safety Report 15618184 (Version 4)
Quarter: 2019Q1

REPORT INFORMATION
  Report Type: Report from Study
  Country: IT (occurrence: IT)
  Receive Date: 20181114
  Receipt Date: 20190130
  Transmission Date: 20190417
  Serious: Yes (Hospitalization)
  Sender: FDA-Public Use
  Company Number: IT-PFIZER INC-2018464498

PATIENT
  Age: 56 Year
  Sex: Female

DRUGS (7)
  1. XANAX [Suspect]
     Active Substance: ALPRAZOLAM
     Indication: DEPRESSION
     Dosage: UNK (0.75 ML 1 BATTLE)
     Dates: start: 20181020, end: 20181020
  2. VENLAFAXINE HCL [Suspect]
     Active Substance: VENLAFAXINE HYDROCHLORIDE
     Indication: DEPRESSION
     Dosage: 1.05 G, SINGLE (75 MG 14 DF)
     Route: 048
     Dates: start: 20181020, end: 20181020
  3. PATROL [Suspect]
     Active Substance: ACETAMINOPHEN\TRAMADOL HYDROCHLORIDE
     Indication: INTENTIONAL SELF-INJURY
     Dosage: [PARACETAMOL 37.5MG]/[3TRAMADOL HYDROCHLORIDE 25 MG], 20 DF
     Dates: start: 20181020, end: 20181020
  4. TRAMADOL HYDROCHLORIDE. [Suspect]
     Active Substance: TRAMADOL HYDROCHLORIDE
     Indication: INTENTIONAL SELF-INJURY
     Dosage: 2 G, SINGLE (100 MG 20 DF)
     Route: 048
     Dates: start: 20181020, end: 20181020
  5. XANAX [Suspect]
     Active Substance: ALPRAZOLAM
     Indication: DEPRESSION
     Dosage: 5 MG, SINGLE (0.25 MG 20 DF)
     Route: 048
     Dates: start: 20181020, end: 20181020
  6. QUETIAPINE. [Suspect]
     Active Substance: QUETIAPINE
     Indication: DEPRESSION
     Dosage: 750 MG, SINGLE (25 MG 30 DF)
     Route: 048
     Dates: start: 20181020, end: 20181020
  7. ACETYLSALICYLIC ACID [Suspect]
     Active Substance: ASPIRIN
     Indication: INTENTIONAL SELF-INJURY
     Dosage: 3 G, SINGLE (100 MG 30 DF)
     Route: 048
     Dates: start: 20181020, end: 20181020

REACTIONS (4)
  - Intentional overdose [Not Recovered/Not Resolved]
  - Toxicity to various agents [Not Recovered/Not Resolved]
  - Sopor [Not Recovered/Not Resolved]
  - Intentional self-injury [Not Recovered/Not Resolved]

NARRATIVE: CASE EVENT DATE: 20181020
